FAERS Safety Report 7970754-6 (Version None)
Quarter: 2011Q4

REPORT INFORMATION
  Report Type: 
  Country: None (occurrence: None)
  Receive Date: 20111212
  Receipt Date: 20111130
  Transmission Date: 20120403
  Serious: Yes (Other)
  Sender: FDA-Public Use
  Company Number: PHHY2011JP50820

PATIENT
  Sex: Female
  Weight: 35 kg

DRUGS (14)
  1. DOMPERIDONE  (HADODOLIN) [Concomitant]
     Dosage: 30 MG, UNK
     Route: 048
     Dates: start: 20091005, end: 20101004
  2. TORSEMIDE [Concomitant]
     Dosage: 4 MG, UNK
     Route: 048
     Dates: start: 20091005, end: 20101005
  3. SUCRALFATE [Concomitant]
     Dosage: 3 G, UNK
     Route: 048
     Dates: start: 20091005, end: 20101004
  4. EXJADE [Suspect]
     Indication: APLASTIC ANAEMIA
     Dosage: 500 MG, UNK
     Route: 048
     Dates: start: 20091005, end: 20100816
  5. MEDIPEACE [Concomitant]
     Dosage: 10 MG, UNK
     Route: 048
     Dates: start: 20100412, end: 20101004
  6. LIPITOR [Concomitant]
     Dosage: 10 MG, UNK
     Route: 048
     Dates: start: 20091005, end: 20101004
  7. OMEPRAZOLE [Concomitant]
     Dosage: 20 MG, UNK
     Route: 048
     Dates: start: 20091005, end: 20101004
  8. ZOLPIDEM [Concomitant]
     Dosage: 10 MG, UNK
     Route: 048
     Dates: start: 20091005
  9. EXJADE [Suspect]
     Dosage: 500 MG
     Route: 048
     Dates: start: 20101004, end: 20101018
  10. CELECTOL [Concomitant]
     Dosage: 100 MG, UNK
     Route: 048
     Dates: start: 20091005, end: 20101004
  11. EXJADE [Suspect]
     Dosage: UNK
     Route: 048
     Dates: end: 20100828
  12. NEORAL [Concomitant]
     Indication: APLASTIC ANAEMIA
     Dosage: 100 MG, UNK
     Route: 048
     Dates: start: 20091005, end: 20101004
  13. AMLODIPINE [Concomitant]
     Dosage: 5 MG, UNK
     Route: 048
     Dates: start: 20091005, end: 20101004
  14. ZYLORIC ^FRESENIUS^ [Concomitant]
     Dosage: 100 MG, UNK
     Route: 048
     Dates: start: 20091005, end: 20101004

REACTIONS (7)
  - DECREASED APPETITE [None]
  - GASTRIC POLYPS [None]
  - ANAEMIA [None]
  - NAUSEA [None]
  - DUODENAL ULCER [None]
  - ABDOMINAL PAIN [None]
  - GASTRITIS [None]
